FAERS Safety Report 14924026 (Version 1)
Quarter: 2018Q2

REPORT INFORMATION
  Report Type: Spontaneous
  Country: US (occurrence: US)
  Receive Date: 20180503
  Receipt Date: 20180503
  Transmission Date: 20180711
  Serious: Yes (Other)
  Sender: FDA-Public Use
  Company Number: None

PATIENT
  Age: 48 Year
  Sex: Female
  Weight: 36.9 kg

DRUGS (13)
  1. ZOLOFT [Concomitant]
     Active Substance: SERTRALINE HYDROCHLORIDE
  2. BUSPARINE [Concomitant]
  3. TRAZODONE [Concomitant]
     Active Substance: TRAZODONE HYDROCHLORIDE
  4. INFUSIONS [Concomitant]
  5. GJ FEEDING TUBE [Concomitant]
  6. ASPIRIN. [Concomitant]
     Active Substance: ASPIRIN
  7. PROGRAF [Concomitant]
     Active Substance: TACROLIMUS\TACROLIMUS ANHYDROUS
  8. TOPAMAX [Concomitant]
     Active Substance: TOPIRAMATE
  9. ROPINIROL [Concomitant]
     Active Substance: ROPINIROLE
  10. PANTAPRAZOLE [Concomitant]
     Active Substance: PANTOPRAZOLE SODIUM
  11. PROLIA [Suspect]
     Active Substance: DENOSUMAB
     Indication: OSTEOPOROSIS
     Dosage: ?          OTHER FREQUENCY:EVERY 6 MONTHS;?
     Route: 030
     Dates: start: 20180317
  12. CELLCEPT [Concomitant]
     Active Substance: MYCOPHENOLATE MOFETIL\MYCOPHENOLATE MOFETIL HYDROCHLORIDE
  13. GABAPENTIN. [Concomitant]
     Active Substance: GABAPENTIN

REACTIONS (8)
  - Oropharyngeal pain [None]
  - Pain [None]
  - Ear pain [None]
  - Musculoskeletal pain [None]
  - Bone pain [None]
  - Rib fracture [None]
  - Arthralgia [None]
  - Myalgia [None]

NARRATIVE: CASE EVENT DATE: 20180402
